FAERS Safety Report 19496120 (Version 1)
Quarter: 2021Q3

REPORT INFORMATION
  Report Type: Spontaneous
  Country: IN (occurrence: IN)
  Receive Date: 20210706
  Receipt Date: 20210706
  Transmission Date: 20211014
  Serious: Yes (Life-Threatening, Hospitalization, Other)
  Sender: FDA-Public Use
  Company Number: IN-MACLEODS PHARMACEUTICALS US LTD-MAC2021031715

PATIENT

DRUGS (3)
  1. METOPROLOL 25 MG [Suspect]
     Active Substance: METOPROLOL
     Indication: PRODUCT USED FOR UNKNOWN INDICATION
     Dosage: 25 MILLIGRAM, QD
     Route: 065
  2. GLIMEPIRIDE. [Concomitant]
     Active Substance: GLIMEPIRIDE
     Indication: PRODUCT USED FOR UNKNOWN INDICATION
     Dosage: 4 MILLIGRAM, QD
     Route: 065
  3. AMLODIPINE [Suspect]
     Active Substance: AMLODIPINE BESYLATE
     Indication: PRODUCT USED FOR UNKNOWN INDICATION
     Dosage: 5 MILLIGRAM, QD
     Route: 065

REACTIONS (9)
  - Lactic acidosis [Recovered/Resolved]
  - Cardiac arrest [Recovered/Resolved]
  - Unresponsive to stimuli [Recovered/Resolved]
  - Metabolic acidosis [Recovered/Resolved]
  - Left ventricular dysfunction [Recovered/Resolved]
  - Hyperkalaemia [Recovered/Resolved]
  - Hyperventilation [Recovered/Resolved]
  - Electrocardiogram QRS complex prolonged [Recovered/Resolved]
  - BRASH syndrome [Recovered/Resolved]
